FAERS Safety Report 21389133 (Version 1)
Quarter: 2022Q3

REPORT INFORMATION
  Report Type: Report from Study
  Country: DE (occurrence: DE)
  Receive Date: 20220929
  Receipt Date: 20220929
  Transmission Date: 20221026
  Serious: Yes (Death, Hospitalization)
  Sender: FDA-Public Use
  Company Number: DE-NOVPHSZ-PHHY2018DE176511

PATIENT
  Sex: Female

DRUGS (5)
  1. METHOTREXATE [Suspect]
     Active Substance: METHOTREXATE
     Indication: Rheumatoid arthritis
     Dosage: 17.5 MG, ROUTE OF ADMINISTRATION : UNKNOWN, THERAPY END DATE : ASKU
     Route: 065
     Dates: start: 20170502
  2. METHOTREXATE [Suspect]
     Active Substance: METHOTREXATE
     Dosage: 17.5 MG, THERAPY END DATE : ASKU
     Dates: start: 20160927
  3. METHOTREXATE [Suspect]
     Active Substance: METHOTREXATE
     Dosage: 17.5 MG, THERAPY END DATE : ASKU
     Dates: start: 20150910
  4. METHOTREXATE [Suspect]
     Active Substance: METHOTREXATE
     Dosage: 17.5 MG, THERAPY END DATE : ASKU
     Dates: start: 20160329
  5. METHOTREXATE [Suspect]
     Active Substance: METHOTREXATE
     Dosage: 17.5 MG, THERAPY END DATE : ASKU
     Dates: start: 20151211

REACTIONS (5)
  - Cardiac failure [Fatal]
  - Emphysema [Unknown]
  - Pneumonia [Unknown]
  - Respiratory failure [Unknown]
  - Vulvovaginal mycotic infection [Unknown]

NARRATIVE: CASE EVENT DATE: 20170220
